FAERS Safety Report 10487504 (Version 2)
Quarter: 2014Q4

REPORT INFORMATION
  Report Type: Report from Study
  Country: JP (occurrence: JP)
  Receive Date: 20141001
  Receipt Date: 20141121
  Transmission Date: 20150528
  Serious: Yes (Death, Life-Threatening, Other)
  Sender: FDA-Public Use
  Company Number: JP-TAKEDA-2014TUS009157

PATIENT
  Age: 85 Year
  Sex: Female
  Weight: 46.2 kg

DRUGS (7)
  1. OLMETEC [Concomitant]
     Active Substance: OLMESARTAN MEDOXOMIL
     Indication: HYPERTENSION
     Dosage: 20 MG, QD
     Route: 048
     Dates: start: 200007, end: 20130220
  2. DIART [Concomitant]
     Active Substance: AZOSEMIDE
     Indication: CARDIAC FAILURE
     Dosage: 60 MG, QD
     Route: 048
     Dates: start: 200007, end: 20130220
  3. ALDACTONE [Concomitant]
     Active Substance: SPIRONOLACTONE
     Indication: CARDIAC FAILURE
     Dosage: 25 MG, QD
     Route: 048
     Dates: start: 200007, end: 20130220
  4. FEBURIC [Suspect]
     Active Substance: FEBUXOSTAT
     Indication: HYPERURICAEMIA
     Dosage: 20 MG, QD
     Route: 048
     Dates: start: 20121107, end: 20130327
  5. FERROMIA                           /00023520/ [Concomitant]
     Indication: IRON DEFICIENCY ANAEMIA
     Dosage: 100 MG, QD
     Route: 048
     Dates: start: 200007, end: 20130220
  6. WARFARIN [Suspect]
     Active Substance: WARFARIN
     Indication: ATRIAL FIBRILLATION
     Dosage: 1.25 MG
     Route: 048
     Dates: start: 200007, end: 20130220
  7. YOKUKANSAN [Concomitant]
     Active Substance: HERBALS
     Indication: DEMENTIA
     Dosage: 5 G, QD
     Route: 048
     Dates: start: 200007, end: 20130220

REACTIONS (4)
  - Gastric ulcer [Recovering/Resolving]
  - Shock haemorrhagic [Recovering/Resolving]
  - Dehydration [Recovered/Resolved]
  - Cerebral infarction [Fatal]

NARRATIVE: CASE EVENT DATE: 20121207
